FAERS Safety Report 8446652-0 (Version None)
Quarter: 2012Q2

REPORT INFORMATION
  Report Type: 
  Country: None (occurrence: None)
  Receive Date: 20120619
  Receipt Date: 20120607
  Transmission Date: 20120825
  Serious: No
  Sender: FDA-Public Use
  Company Number: US-BIOGENIDEC-2012BI016897

PATIENT
  Sex: Female

DRUGS (1)
  1. TYSABRI [Suspect]
     Indication: MULTIPLE SCLEROSIS
     Route: 042
     Dates: start: 20070104, end: 20120314

REACTIONS (8)
  - DIABETES MELLITUS [None]
  - OPEN WOUND [None]
  - HYPERSOMNIA [None]
  - NAIL INJURY [None]
  - HYPERKERATOSIS [None]
  - ASTHENIA [None]
  - STAPHYLOCOCCAL INFECTION [None]
  - LOCALISED INFECTION [None]
